FAERS Safety Report 7794953-1 (Version None)
Quarter: 2011Q4

REPORT INFORMATION
  Report Type: 
  Country: None (occurrence: None)
  Receive Date: 20111004
  Receipt Date: 20110926
  Transmission Date: 20120403
  Serious: Yes (Other)
  Sender: FDA-Public Use
  Company Number: US-AMGEN-USASP2011046414

PATIENT
  Age: 55 Year
  Sex: Female
  Weight: 42 kg

DRUGS (4)
  1. EPOGEN [Suspect]
     Indication: ANAEMIA OF CHRONIC DISEASE
     Dosage: UNK UNK, 3 TIMES/WK
     Route: 042
     Dates: start: 20100410, end: 20101101
  2. CATAPRES-TTS-2 [Suspect]
     Dosage: UNK
     Dates: start: 20100910
  3. FOSRENOL [Concomitant]
     Dosage: 500 MG, TID
     Dates: start: 20110425
  4. METOPROLOL TARTRATE [Concomitant]
     Dosage: 50 MG, UNK
     Dates: start: 20110216

REACTIONS (2)
  - ALOPECIA [None]
  - HAEMOGLOBIN DECREASED [None]
